FAERS Safety Report 17557962 (Version 2)
Quarter: 2020Q1

REPORT INFORMATION
  Report Type: Spontaneous
  Country: CN (occurrence: CN)
  Receive Date: 20200318
  Receipt Date: 20200331
  Transmission Date: 20200409
  Serious: Yes (Other)
  Sender: FDA-Public Use
  Company Number: CN-LEO PHARMA-328828

PATIENT
  Age: 19 Year
  Sex: Male
  Weight: 50 kg

DRUGS (1)
  1. PROTOPIC [Suspect]
     Active Substance: TACROLIMUS
     Indication: LICHEN SCLEROSUS
     Dosage: AT THE BEGINNING, THE FREQUENCY WAS TWICE A DAY, WHEN CONDITION WAS RECOVERING, THE PATIENT DIDNT U
     Route: 065
     Dates: end: 20200315

REACTIONS (3)
  - Therapeutic product effective for unapproved indication [Unknown]
  - Epilepsy [Not Recovered/Not Resolved]
  - Product use in unapproved indication [Unknown]

NARRATIVE: CASE EVENT DATE: 20200315
